FAERS Safety Report 23803350 (Version 1)
Quarter: 2024Q2

REPORT INFORMATION
  Report Type: Spontaneous
  Country: US (occurrence: None)
  Receive Date: 20240430
  Receipt Date: 20240430
  Transmission Date: 20240716
  Serious: Yes (Disabling)
  Sender: FDA-Public Use
  Company Number: None

PATIENT
  Age: 68 Year
  Sex: Female
  Weight: 62.1 kg

DRUGS (8)
  1. SULFASALAZINE [Suspect]
     Active Substance: SULFASALAZINE
     Indication: Rheumatoid arthritis
     Dosage: OTHER QUANTITY : 1 TABLET(S);?OTHER FREQUENCY : START WITH 1 TAB;?
     Route: 048
     Dates: start: 20240330, end: 20240423
  2. METHOTREXATE [Concomitant]
     Active Substance: METHOTREXATE
  3. SYNTHROID [Concomitant]
     Active Substance: LEVOTHYROXINE SODIUM
  4. CALCIUM [Concomitant]
  5. MAGNESIUM [Concomitant]
  6. Beef broth [Concomitant]
  7. POTASSIUM [Concomitant]
  8. multi-vitamin [Concomitant]

REACTIONS (9)
  - Rheumatoid arthritis [None]
  - Neck pain [None]
  - Swelling [None]
  - Joint stiffness [None]
  - Pain in extremity [None]
  - Bursitis [None]
  - Musculoskeletal pain [None]
  - Therapy cessation [None]
  - Rash erythematous [None]

NARRATIVE: CASE EVENT DATE: 20240408
